FAERS Safety Report 5792416-6 (Version None)
Quarter: 2008Q2

REPORT INFORMATION
  Report Type: 
  Country: None (occurrence: None)
  Receive Date: 20080626
  Receipt Date: 20080620
  Transmission Date: 20081010
  Serious: Yes (Other)
  Sender: FDA-Public Use
  Company Number: CA-PFIZER INC-2008045405

PATIENT
  Sex: Female

DRUGS (8)
  1. LIPITOR [Suspect]
     Indication: CARDIOVASCULAR EVENT PROPHYLAXIS
     Route: 048
     Dates: start: 20030801, end: 20080601
  2. PLAVIX [Concomitant]
  3. VAGIFEM [Concomitant]
  4. LOSEC I.V. [Concomitant]
  5. VALSARTAN [Concomitant]
  6. METOPROLOL [Concomitant]
  7. IMOVANE [Concomitant]
  8. NICODERM [Concomitant]

REACTIONS (3)
  - AMNESIA [None]
  - COGNITIVE DISORDER [None]
  - FEELING ABNORMAL [None]
